FAERS Safety Report 25632253 (Version 1)
Quarter: 2025Q3

REPORT INFORMATION
  Report Type: Report from Study
  Country: US (occurrence: US)
  Receive Date: 20250801
  Receipt Date: 20250801
  Transmission Date: 20251021
  Serious: Yes (Life-Threatening, Hospitalization)
  Sender: MYLAN
  Company Number: US-MYLANLABS-2025M1065639

PATIENT
  Age: 60 Year
  Sex: Male

DRUGS (20)
  1. SERTRALINE [Suspect]
     Active Substance: SERTRALINE HYDROCHLORIDE
     Indication: Product used for unknown indication
  2. SERTRALINE [Suspect]
     Active Substance: SERTRALINE HYDROCHLORIDE
     Route: 048
  3. SERTRALINE [Suspect]
     Active Substance: SERTRALINE HYDROCHLORIDE
     Route: 048
  4. SERTRALINE [Suspect]
     Active Substance: SERTRALINE HYDROCHLORIDE
  5. BENZONATATE [Suspect]
     Active Substance: BENZONATATE
     Indication: Product used for unknown indication
  6. BENZONATATE [Suspect]
     Active Substance: BENZONATATE
     Route: 048
  7. BENZONATATE [Suspect]
     Active Substance: BENZONATATE
     Route: 048
  8. BENZONATATE [Suspect]
     Active Substance: BENZONATATE
  9. BUPROPION [Suspect]
     Active Substance: BUPROPION
     Indication: Product used for unknown indication
  10. BUPROPION [Suspect]
     Active Substance: BUPROPION
     Route: 048
  11. BUPROPION [Suspect]
     Active Substance: BUPROPION
     Route: 048
  12. BUPROPION [Suspect]
     Active Substance: BUPROPION
  13. QUETIAPINE [Suspect]
     Active Substance: QUETIAPINE
     Indication: Product used for unknown indication
  14. QUETIAPINE [Suspect]
     Active Substance: QUETIAPINE
     Route: 048
  15. QUETIAPINE [Suspect]
     Active Substance: QUETIAPINE
     Route: 048
  16. QUETIAPINE [Suspect]
     Active Substance: QUETIAPINE
  17. DICLOFENAC [Suspect]
     Active Substance: DICLOFENAC
     Indication: Product used for unknown indication
  18. DICLOFENAC [Suspect]
     Active Substance: DICLOFENAC
     Route: 048
  19. DICLOFENAC [Suspect]
     Active Substance: DICLOFENAC
     Route: 048
  20. DICLOFENAC [Suspect]
     Active Substance: DICLOFENAC

REACTIONS (1)
  - Intentional product use issue [Unknown]
